FAERS Safety Report 10250719 (Version 1)
Quarter: 2014Q2

REPORT INFORMATION
  Report Type: Spontaneous
  Country: US (occurrence: US)
  Receive Date: 20140620
  Receipt Date: 20140620
  Transmission Date: 20141212
  Serious: Yes (Other)
  Sender: FDA-Public Use
  Company Number: US-AMGEN-USASP2014045182

PATIENT
  Sex: 0

DRUGS (5)
  1. XGEVA [Suspect]
     Indication: METASTASES TO BONE
     Dosage: UNK
     Route: 065
  2. FASLODEX                           /01285001/ [Concomitant]
  3. FEMARA [Concomitant]
  4. TAXOL [Concomitant]
  5. AVASTIN                            /00848101/ [Concomitant]

REACTIONS (1)
  - Metastases to liver [Unknown]
